FAERS Safety Report 7309825-6 (Version None)
Quarter: 2011Q1

REPORT INFORMATION
  Report Type: 
  Country: None (occurrence: None)
  Receive Date: 20110224
  Receipt Date: 20110211
  Transmission Date: 20110831
  Serious: No
  Sender: FDA-Public Use
  Company Number: US-BIOGENIDEC-2011BI006175

PATIENT
  Age: 59 Year
  Sex: Female

DRUGS (1)
  1. TYSABRI [Suspect]
     Indication: MULTIPLE SCLEROSIS
     Route: 042
     Dates: start: 20080620

REACTIONS (6)
  - INSOMNIA [None]
  - PSYCHOMOTOR HYPERACTIVITY [None]
  - ANXIETY [None]
  - URINARY TRACT INFECTION [None]
  - DRUG HYPERSENSITIVITY [None]
  - CYSTITIS [None]
